FAERS Safety Report 18992936 (Version 3)
Quarter: 2021Q1

REPORT INFORMATION
  Report Type: Report from Study
  Country: LB (occurrence: LB)
  Receive Date: 20210310
  Receipt Date: 20210331
  Transmission Date: 20210420
  Serious: Yes (Disabling)
  Sender: FDA-Public Use
  Company Number: LB-CELGENEUS-LBN-20201208857

PATIENT
  Age: 23 Year
  Sex: Male
  Weight: 51 kg

DRUGS (15)
  1. LUSPATERCEPT. [Suspect]
     Active Substance: LUSPATERCEPT
     Indication: THALASSAEMIA BETA
     Route: 058
     Dates: start: 20170307, end: 20170411
  2. LUSPATERCEPT. [Suspect]
     Active Substance: LUSPATERCEPT
     Route: 058
     Dates: start: 20171005, end: 20180226
  3. LUSPATERCEPT. [Suspect]
     Active Substance: LUSPATERCEPT
     Route: 058
     Dates: start: 20170707, end: 20170912
  4. LUSPATERCEPT. [Suspect]
     Active Substance: LUSPATERCEPT
     Route: 058
     Dates: start: 20180320, end: 20180725
  5. LUSPATERCEPT. [Suspect]
     Active Substance: LUSPATERCEPT
     Route: 058
     Dates: start: 20200107, end: 20200217
  6. LUSPATERCEPT. [Suspect]
     Active Substance: LUSPATERCEPT
     Dosage: 1.25 MILLIGRAM/KILOGRAM
     Route: 058
     Dates: start: 20170502, end: 20170502
  7. LUSPATERCEPT. [Suspect]
     Active Substance: LUSPATERCEPT
     Dosage: 1.25 MILLIGRAM/KILOGRAM
     Route: 058
     Dates: start: 20200310, end: 20200330
  8. LUSPATERCEPT. [Suspect]
     Active Substance: LUSPATERCEPT
     Route: 058
     Dates: start: 20180817, end: 20181130
  9. LUSPATERCEPT. [Suspect]
     Active Substance: LUSPATERCEPT
     Dosage: 1.25 MILLIGRAM/KILOGRAM
     Route: 058
     Dates: start: 20201104, end: 20210303
  10. LUSPATERCEPT. [Suspect]
     Active Substance: LUSPATERCEPT
     Route: 058
     Dates: start: 20190408, end: 20191129
  11. LUSPATERCEPT. [Suspect]
     Active Substance: LUSPATERCEPT
     Route: 058
     Dates: start: 20170523, end: 20170616
  12. DESFERAL [Suspect]
     Active Substance: DEFEROXAMINE MESYLATE
     Indication: PRODUCT USED FOR UNKNOWN INDICATION
     Dosage: 1250 MILLIGRAM
     Route: 058
     Dates: start: 20180227, end: 20200420
  13. DESFERAL [Suspect]
     Active Substance: DEFEROXAMINE MESYLATE
     Dosage: 1250 MILLIGRAM
     Route: 058
     Dates: start: 20200504, end: 2020
  14. DESFERAL [Suspect]
     Active Substance: DEFEROXAMINE MESYLATE
     Route: 041
     Dates: start: 20201014, end: 2020
  15. LUSPATERCEPT. [Suspect]
     Active Substance: LUSPATERCEPT
     Route: 058
     Dates: start: 20181218, end: 20190318

REACTIONS (1)
  - Myelopathy [Recovered/Resolved]

NARRATIVE: CASE EVENT DATE: 20201126
